FAERS Safety Report 5341462-5 (Version None)
Quarter: 2007Q2

REPORT INFORMATION
  Report Type: 
  Country: None (occurrence: None)
  Receive Date: 20070530
  Receipt Date: 20070514
  Transmission Date: 20071010
  Serious: Yes (Life-Threatening)
  Sender: FDA-Public Use
  Company Number: GXKR2007ES04291

PATIENT
  Age: 73 Year
  Sex: Male

DRUGS (8)
  1. METFORMIN HCL [Suspect]
     Indication: BLOOD GLUCOSE INCREASED
     Dosage: 850 MG, Q8H
  2. CLOPIDOGREL [Concomitant]
  3. SIMVASTATIN [Concomitant]
  4. ENOXAPARIN (ENOXAPARIN, HEPARIN-FRACTION) [Concomitant]
  5. ENALAPRIL (ENALAPRIL) [Concomitant]
  6. CLOMETHIAZOLE (CLOMETHIAZOLE) [Concomitant]
  7. HALOPERIDOL [Concomitant]
  8. INSULIN (INSULIN) [Concomitant]

REACTIONS (8)
  - HAEMODIALYSIS [None]
  - HYPERCALCAEMIA [None]
  - HYPOPERFUSION [None]
  - LACTIC ACIDOSIS [None]
  - LOSS OF CONSCIOUSNESS [None]
  - OXYGEN SATURATION DECREASED [None]
  - RENAL IMPAIRMENT [None]
  - SHOCK [None]
